FAERS Safety Report 10016359 (Version 1)
Quarter: 2014Q1

REPORT INFORMATION
  Report Type: Report from Study
  Country: MX (occurrence: MX)
  Receive Date: 20140317
  Receipt Date: 20140317
  Transmission Date: 20141002
  Serious: Yes (Death, Other)
  Sender: FDA-Public Use
  Company Number: PHHY2014MX032114

PATIENT
  Age: 80 Year
  Sex: Female

DRUGS (3)
  1. DIOVAN [Suspect]
     Indication: HYPERTENSION
     Dosage: 2 DF (80MG) DAILY
     Route: 048
  2. DIOVAN [Suspect]
     Dosage: 3 DF (80MG) DAILY
     Route: 048
  3. ADALAT [Concomitant]
     Indication: HYPERTENSION
     Dosage: 1 UKN, UNK
     Route: 048
     Dates: start: 2004

REACTIONS (5)
  - Respiratory disorder [Fatal]
  - Hypoventilation [Fatal]
  - Cardiac disorder [Fatal]
  - Arrhythmia [Fatal]
  - Neuralgia [Unknown]
